FAERS Safety Report 6891938-4 (Version None)
Quarter: 2010Q3

REPORT INFORMATION
  Report Type: 
  Country: None (occurrence: None)
  Receive Date: 20100731
  Receipt Date: 20071213
  Transmission Date: 20110219
  Serious: No
  Sender: FDA-Public Use
  Company Number: US-PFIZER INC-2007105184

PATIENT

DRUGS (1)
  1. NEURONTIN [Suspect]
     Indication: ARNOLD-CHIARI MALFORMATION

REACTIONS (1)
  - LIBIDO INCREASED [None]
